FAERS Safety Report 5096587-9 (Version None)
Quarter: 2006Q3

REPORT INFORMATION
  Report Type: 
  Country: None (occurrence: None)
  Receive Date: 20060905
  Receipt Date: 20060828
  Transmission Date: 20061208
  Serious: Yes (Death, Hospitalization)
  Sender: FDA-Public Use
  Company Number: US-ABBOTT-06P-163-0342381-00

PATIENT
  Age: 38 Year
  Sex: Male

DRUGS (6)
  1. RITONAVIR [Suspect]
     Indication: DRUG USE FOR UNKNOWN INDICATION
  2. POSACONAZOLE [Suspect]
     Indication: FUNGAL INFECTION
     Route: 048
     Dates: start: 20060301, end: 20060722
  3. MEPACRINE HYDROCHLORIDE [Interacting]
     Indication: GIARDIASIS
  4. METRONIDAZOLE [Suspect]
     Indication: GIARDIASIS
  5. MORPHINE [Concomitant]
     Indication: DRUG USE FOR UNKNOWN INDICATION
     Dates: start: 20060722, end: 20060723
  6. NITAZOXANIDE [Concomitant]
     Indication: GIARDIASIS

REACTIONS (6)
  - CACHEXIA [None]
  - CARDIO-RESPIRATORY ARREST [None]
  - CONVULSION [None]
  - DIARRHOEA [None]
  - DRUG INTERACTION [None]
  - GIARDIASIS [None]
